FAERS Safety Report 13618128 (Version 2)
Quarter: 2017Q2

REPORT INFORMATION
  Report Type: Spontaneous
  Country: DE (occurrence: DE)
  Receive Date: 20170606
  Receipt Date: 20170607
  Transmission Date: 20170830
  Serious: Yes (Hospitalization)
  Sender: FDA-Public Use
  Company Number: DE-TEVA-773490GER

PATIENT
  Age: 55 Year
  Sex: Female

DRUGS (9)
  1. OLANZAPIN [Suspect]
     Active Substance: OLANZAPINE
     Route: 048
     Dates: start: 2016, end: 20170117
  2. VALPROAT [Interacting]
     Active Substance: VALPROATE SODIUM
     Route: 048
     Dates: start: 20161213, end: 20161219
  3. VALPROAT [Interacting]
     Active Substance: VALPROATE SODIUM
     Route: 048
     Dates: start: 20170119, end: 20170123
  4. VALPROAT [Interacting]
     Active Substance: VALPROATE SODIUM
     Route: 048
     Dates: start: 2011, end: 20161212
  5. VALPROAT [Interacting]
     Active Substance: VALPROATE SODIUM
     Route: 048
     Dates: start: 20161220, end: 20170110
  6. OLANZAPIN [Interacting]
     Active Substance: OLANZAPINE
     Route: 048
     Dates: start: 20170118, end: 20170121
  7. VALPROAT [Interacting]
     Active Substance: VALPROATE SODIUM
     Route: 048
     Dates: start: 20170111, end: 20170118
  8. ASENAPIN [Interacting]
     Active Substance: ASENAPINE
     Route: 048
     Dates: start: 2016, end: 20170117
  9. ZYPADHERA [Interacting]
     Active Substance: OLANZAPINE PAMOATE
     Route: 030
     Dates: start: 2016, end: 20170112

REACTIONS (2)
  - Parkinsonism [Recovering/Resolving]
  - Drug interaction [Unknown]

NARRATIVE: CASE EVENT DATE: 20161101
